FAERS Safety Report 25095570 (Version 1)
Quarter: 2025Q1

REPORT INFORMATION
  Report Type: Spontaneous
  Country: US (occurrence: US)
  Receive Date: 20250319
  Receipt Date: 20250319
  Transmission Date: 20250409
  Serious: Yes (Hospitalization, Other)
  Sender: MYLAN
  Company Number: US-MYLANLABS-2025M1021537

PATIENT
  Age: 11 Year
  Sex: Female

DRUGS (5)
  1. DEXAMETHASONE [Suspect]
     Active Substance: DEXAMETHASONE
     Indication: Ganglioglioma
     Dosage: 9 MILLIGRAM, QD
     Dates: end: 2022
  2. DEXAMETHASONE [Suspect]
     Active Substance: DEXAMETHASONE
     Dosage: 5 MILLIGRAM, QD
  3. METFORMIN [Suspect]
     Active Substance: METFORMIN HYDROCHLORIDE
     Indication: Steroid diabetes
  4. TRAMETINIB [Suspect]
     Active Substance: TRAMETINIB
     Indication: Ganglioglioma
  5. AVASTIN [Concomitant]
     Active Substance: BEVACIZUMAB
     Indication: Ganglioglioma

REACTIONS (7)
  - Cellulitis [Unknown]
  - Sleep apnoea syndrome [Unknown]
  - Obesity [Recovering/Resolving]
  - Drug ineffective [Unknown]
  - Impaired healing [Unknown]
  - Steroid diabetes [Recovering/Resolving]
  - Hypertension [Unknown]
